FAERS Safety Report 5029646-7 (Version None)
Quarter: 2006Q2

REPORT INFORMATION
  Report Type: 
  Country: None (occurrence: None)
  Receive Date: 20060503
  Receipt Date: 20060331
  Transmission Date: 20061013
  Serious: No
  Sender: FDA-Public Use
  Company Number: FACT0600198

PATIENT
  Age: 47 Year
  Sex: Male
  Weight: 191.4 kg

DRUGS (6)
  1. FACTIVE [Suspect]
     Indication: RESPIRATORY TRACT INFECTION BACTERIAL
     Dosage: 320 MG,QD, ORAL
     Route: 048
     Dates: start: 20060321, end: 20060330
  2. KADIAN [Concomitant]
  3. SKELAXIN [Concomitant]
  4. ATENOLOL [Concomitant]
  5. CYMBALTA [Concomitant]
  6. CELEBREX [Concomitant]

REACTIONS (2)
  - DRUG INEFFECTIVE [None]
  - RASH GENERALISED [None]
